FAERS Safety Report 23483859 (Version 1)
Quarter: 2024Q1

REPORT INFORMATION
  Report Type: Spontaneous
  Country: FR (occurrence: FR)
  Receive Date: 20240205
  Receipt Date: 20240205
  Transmission Date: 20240409
  Serious: Yes (Hospitalization, Other)
  Sender: FDA-Public Use
  Company Number: FR-CELLTRION INC.-2024FR002299

PATIENT

DRUGS (1)
  1. INFLIXIMAB [Suspect]
     Active Substance: INFLIXIMAB
     Indication: Behcet^s syndrome
     Dosage: 5 MG/KG
     Route: 042
     Dates: start: 20230515, end: 20230801

REACTIONS (2)
  - Hepatic cytolysis [Recovering/Resolving]
  - Intentional product use issue [Unknown]

NARRATIVE: CASE EVENT DATE: 20230626
